FAERS Safety Report 8509152-5 (Version None)
Quarter: 2012Q3

REPORT INFORMATION
  Report Type: 
  Country: None (occurrence: None)
  Receive Date: 20120713
  Receipt Date: 20120710
  Transmission Date: 20120928
  Serious: Yes (Hospitalization)
  Sender: FDA-Public Use
  Company Number: GB-GLAXOSMITHKLINE-B0813642A

PATIENT
  Age: 29 Year
  Sex: Female
  Weight: 66.68 kg

DRUGS (4)
  1. RIGEVIDON [Concomitant]
     Indication: CONTRACEPTION
     Dosage: 1IUAX PER DAY
     Route: 048
  2. QUETIAPINE [Concomitant]
     Dosage: 75MG PER DAY
     Route: 048
  3. LEVOTHYROXINE SODIUM [Concomitant]
     Dosage: 25MCG PER DAY
     Route: 048
  4. LAMOTRIGINE [Suspect]
     Indication: BIPOLAR DISORDER
     Dosage: 100MG PER DAY
     Route: 048
     Dates: start: 20120301, end: 20120621

REACTIONS (7)
  - PHOTOPHOBIA [None]
  - VOMITING [None]
  - NAUSEA [None]
  - MUSCULOSKELETAL STIFFNESS [None]
  - HEADACHE [None]
  - MENINGITIS [None]
  - PROTEIN TOTAL ABNORMAL [None]
